FAERS Safety Report 4730118-5 (Version None)
Quarter: 2005Q3

REPORT INFORMATION
  Report Type: 
  Country: None (occurrence: None)
  Receive Date: 20050728
  Receipt Date: 20050720
  Transmission Date: 20060218
  Serious: Yes (Hospitalization, Other)
  Sender: FDA-Public Use
  Company Number: DEU-2005-0001510

PATIENT
  Age: 21 Year
  Sex: Female
  Weight: 78 kg

DRUGS (4)
  1. OXYCODONE HCL [Suspect]
     Indication: HEADACHE
     Dosage: 20 MG, DAILY, ORAL
     Route: 048
     Dates: start: 20050410, end: 20050606
  2. TOPAMAX [Concomitant]
  3. EFFEXOR XR [Concomitant]
  4. VOLTAREN [Concomitant]

REACTIONS (3)
  - IIIRD NERVE PARALYSIS [None]
  - INTRACRANIAL VENOUS SINUS THROMBOSIS [None]
  - VITH NERVE PARALYSIS [None]
